FAERS Safety Report 17875767 (Version 2)
Quarter: 2021Q4

REPORT INFORMATION
  Report Type: Spontaneous
  Country: PL (occurrence: PL)
  Receive Date: 20200609
  Receipt Date: 20211012
  Transmission Date: 20220303
  Serious: Yes (Hospitalization, Other)
  Sender: FDA-Public Use
  Company Number: PL-KRKA-PL2020K08029LIT

PATIENT
  Age: 9 Year
  Sex: Male

DRUGS (12)
  1. ONDANSETRON [Suspect]
     Active Substance: ONDANSETRON
     Indication: Henoch-Schonlein purpura
     Dosage: UNK
  2. ONDANSETRON [Suspect]
     Active Substance: ONDANSETRON
     Indication: Antibiotic therapy
  3. AMOXICILLIN\CLAVULANIC ACID [Suspect]
     Active Substance: AMOXICILLIN\CLAVULANIC ACID
     Indication: Henoch-Schonlein purpura
     Dosage: UNK
     Route: 065
  4. AMOXICILLIN\CLAVULANIC ACID [Suspect]
     Active Substance: AMOXICILLIN\CLAVULANIC ACID
     Indication: Antibiotic therapy
  5. IBUPROFEN [Suspect]
     Active Substance: IBUPROFEN
     Indication: Product used for unknown indication
     Dosage: UNK
     Route: 065
  6. IBUPROFEN [Suspect]
     Active Substance: IBUPROFEN
     Indication: Henoch-Schonlein purpura
     Dosage: UNK
     Route: 065
  7. IBUPROFEN [Suspect]
     Active Substance: IBUPROFEN
     Indication: Antibiotic therapy
  8. RUTIN [Suspect]
     Active Substance: RUTIN
     Indication: Henoch-Schonlein purpura
     Dosage: UNK
  9. RUTIN [Suspect]
     Active Substance: RUTIN
     Indication: Antibiotic therapy
  10. ETHAMSYLATE [Suspect]
     Active Substance: ETHAMSYLATE
     Indication: Henoch-Schonlein purpura
     Dosage: UNK
  11. ETHAMSYLATE [Suspect]
     Active Substance: ETHAMSYLATE
     Indication: Antibiotic therapy
  12. HYDROCORTISONE [Concomitant]
     Active Substance: HYDROCORTISONE
     Indication: Steroid therapy
     Dosage: 10 MG/KG, PER DAY

REACTIONS (12)
  - Haematochezia [Recovered/Resolved]
  - Condition aggravated [Recovered/Resolved]
  - Haematuria [Recovered/Resolved]
  - Soft tissue swelling [Recovered/Resolved]
  - Papule [Recovered/Resolved]
  - Proteinuria [Recovered/Resolved]
  - Nephropathy [Recovered/Resolved]
  - Hypertension [Recovered/Resolved]
  - Gastrointestinal inflammation [Unknown]
  - Drug ineffective for unapproved indication [Unknown]
  - Diarrhoea haemorrhagic [Unknown]
  - Off label use [Unknown]
